FAERS Safety Report 8828264 (Version 1)
Quarter: 2012Q4

REPORT INFORMATION
  Report Type: 
  Country: JP (occurrence: JP)
  Receive Date: 20121005
  Receipt Date: 20121005
  Transmission Date: 20130627
  Serious: Yes (Other)
  Sender: FDA-Public Use
  Company Number: JP-ROXANE LABORATORIES, INC.-2012-RO-01953RO

PATIENT
  Age: 77 Year

DRUGS (5)
  1. CYCLOPHOSPHAMIDE TABLETS USP [Suspect]
     Indication: DIFFUSE LARGE B-CELL LYMPHOMA
  2. PIRARUBICIN [Suspect]
     Indication: DIFFUSE LARGE B-CELL LYMPHOMA
  3. PREDNISOLONE [Suspect]
     Indication: DIFFUSE LARGE B-CELL LYMPHOMA
  4. VINCRISTINE [Suspect]
     Indication: DIFFUSE LARGE B-CELL LYMPHOMA
  5. ITRACONAZOLE [Suspect]
     Indication: ANTIFUNGAL TREATMENT

REACTIONS (1)
  - Ileus paralytic [Unknown]
